FAERS Safety Report 8648986 (Version 3)
Quarter: 2013Q1

REPORT INFORMATION
  Report Type: Spontaneous
  Country: BR (occurrence: BR)
  Receive Date: 20120704
  Receipt Date: 20130313
  Transmission Date: 20140127
  Serious: Yes (Death, Hospitalization, Other)
  Sender: FDA-Public Use
  Company Number: PHHY2012BR056278

PATIENT
  Sex: Male
  Weight: 64 kg

DRUGS (10)
  1. FORASEQ [Suspect]
     Indication: ASTHMA
     Dosage: 1 INHALATION (12/400MCG) EVERY 12 HRS
  2. FORASEQ [Suspect]
     Indication: CHRONIC OBSTRUCTIVE PULMONARY DISEASE
  3. BEROTEC [Concomitant]
     Indication: CHRONIC OBSTRUCTIVE PULMONARY DISEASE
     Dosage: 4 NEBULIZATIONS A DAY
  4. BEROTEC [Concomitant]
     Indication: ASTHMA
  5. ATROVENT [Concomitant]
     Indication: CHRONIC OBSTRUCTIVE PULMONARY DISEASE
     Dosage: 4 NEBULIZATIONS A DAY
  6. ATROVENT [Concomitant]
     Indication: ASTHMA
  7. SPIRIVA [Concomitant]
     Indication: CHRONIC OBSTRUCTIVE PULMONARY DISEASE
     Dosage: 1 INHALATION EVERY 12 HOURS
  8. SPIRIVA [Concomitant]
     Indication: ASTHMA
  9. RESPIMED [Concomitant]
     Indication: CHRONIC OBSTRUCTIVE PULMONARY DISEASE
     Dosage: 1 INHALATION EVERY 12 HOURS
  10. RESPIMED [Concomitant]
     Indication: ASTHMA

REACTIONS (8)
  - Chronic obstructive pulmonary disease [Fatal]
  - Respiratory failure [Fatal]
  - Cardiac failure [Fatal]
  - Respiratory tract infection bacterial [Recovering/Resolving]
  - Nasopharyngitis [Not Recovered/Not Resolved]
  - Procedural complication [Not Recovered/Not Resolved]
  - Vein disorder [Not Recovered/Not Resolved]
  - Asthma [Not Recovered/Not Resolved]
